FAERS Safety Report 17440193 (Version 1)
Quarter: 2020Q1

REPORT INFORMATION
  Report Type: Spontaneous
  Country: CN (occurrence: CN)
  Receive Date: 20200220
  Receipt Date: 20200220
  Transmission Date: 20200409
  Serious: Yes (Other)
  Sender: FDA-Public Use
  Company Number: CN-BAXTER-2020BAX003789

PATIENT
  Age: 56 Year
  Sex: Female
  Weight: 62.5 kg

DRUGS (12)
  1. TAXOTERE [Suspect]
     Active Substance: DOCETAXEL
     Dosage: TAXOTERE + NS 250 ML, THIRD CHEMOTHERAPY
     Route: 041
     Dates: start: 20191210, end: 20191210
  2. ENDOXAN [Suspect]
     Active Substance: CYCLOPHOSPHAMIDE
     Dosage: ENDOXAN + NS 50 ML , THIRD CHEMOTHERAPY.
     Route: 042
     Dates: start: 20191210, end: 20191210
  3. 0.9% SODIUM CHLORIDE INJECTION [Suspect]
     Active Substance: SODIUM CHLORIDE
     Dosage: TAXOTERE + NS 250ML, THIRD CHEMOTHERAPY.
     Route: 041
     Dates: start: 20191210, end: 20191210
  4. 0.9% SODIUM CHLORIDE INJECTION [Suspect]
     Active Substance: SODIUM CHLORIDE
     Dosage: TAXOTERE + NS (DOSE RE-INTRODUCED)
     Route: 041
  5. TAXOTERE [Suspect]
     Active Substance: DOCETAXEL
     Indication: BREAST CANCER FEMALE
     Dosage: TAXOTERE + NS, FIRST AND SECOND CHEMOTHERAPY.
     Route: 041
  6. ENDOXAN [Suspect]
     Active Substance: CYCLOPHOSPHAMIDE
     Dosage: ENDOXAN + NS (DOSE RE-INTRODUCED)
     Route: 042
  7. TAXOTERE [Suspect]
     Active Substance: DOCETAXEL
     Dosage: TAXOTERE + NS  (DOSE RE-INTRODUCED)
     Route: 041
  8. ENDOXAN [Suspect]
     Active Substance: CYCLOPHOSPHAMIDE
     Indication: BREAST CANCER FEMALE
     Dosage: ENDOXAN + NS , FIRST AND SECOND CHEMOTHERAPY.
     Route: 042
  9. 0.9% SODIUM CHLORIDE INJECTION [Suspect]
     Active Substance: SODIUM CHLORIDE
     Indication: MEDICATION DILUTION
     Dosage: ENDOXAN + NS, FIRST AND SECOND CYCLE OF CHEMOTHERAPY
     Route: 042
  10. 0.9% SODIUM CHLORIDE INJECTION [Suspect]
     Active Substance: SODIUM CHLORIDE
     Dosage: TAXOTERE + NS, FIRST AND SECOND CYCLE OF CHEMOTHERAPY
     Route: 041
  11. 0.9% SODIUM CHLORIDE INJECTION [Suspect]
     Active Substance: SODIUM CHLORIDE
     Dosage: ENDOXAN + NS ( DOSE RE-INTRODUCED)
     Route: 042
  12. 0.9% SODIUM CHLORIDE INJECTION [Suspect]
     Active Substance: SODIUM CHLORIDE
     Dosage: ENDOXAN + NS 50 ML, THIRD CHEMOTHERAPY
     Route: 042
     Dates: start: 20191210, end: 20191210

REACTIONS (1)
  - Agranulocytosis [Recovered/Resolved]

NARRATIVE: CASE EVENT DATE: 20191216
